FAERS Safety Report 8581470 (Version 2)
Quarter: 2012Q4

REPORT INFORMATION
  Report Type: Report from Study
  Country: US (occurrence: US)
  Receive Date: 20120525
  Receipt Date: 20121128
  Transmission Date: 20130627
  Serious: Yes (Life-Threatening, Congenital Anomaly, Other)
  Sender: FDA-Public Use
  Company Number: US-ELI_LILLY_AND_COMPANY-US201205007619

PATIENT
  Age: 0 Year

DRUGS (2)
  1. DULOXETINE HYDROCHLORIDE [Suspect]
     Route: 064
  2. DULOXETINE HYDROCHLORIDE [Suspect]
     Route: 064

REACTIONS (6)
  - Premature baby [Recovered/Resolved]
  - Hypoplastic left heart syndrome [Not Recovered/Not Resolved]
  - Convulsion [Recovered/Resolved]
  - Visual impairment [Not Recovered/Not Resolved]
  - Gastrointestinal disorder [Not Recovered/Not Resolved]
  - Foetal exposure during pregnancy [Recovered/Resolved]
